FAERS Safety Report 18358913 (Version 1)
Quarter: 2020Q4

REPORT INFORMATION
  Report Type: Spontaneous
  Country: US (occurrence: US)
  Receive Date: 20201007
  Receipt Date: 20201007
  Transmission Date: 20210114
  Serious: Yes (Hospitalization)
  Sender: FDA-Public Use
  Company Number: None

PATIENT
  Age: 80 Year
  Sex: Female
  Weight: 68.2 kg

DRUGS (22)
  1. LEVOTHYROXINE. [Concomitant]
     Active Substance: LEVOTHYROXINE
     Dates: start: 20200909
  2. ASPIRIN. [Concomitant]
     Active Substance: ASPIRIN
     Dates: start: 20200909
  3. METOPROLOL. [Concomitant]
     Active Substance: METOPROLOL
     Dates: start: 20200909
  4. MIDAZOLAM. [Concomitant]
     Active Substance: MIDAZOLAM
     Dates: start: 20200911, end: 20200916
  5. METHYLPREDNISOLONE. [Concomitant]
     Active Substance: METHYLPREDNISOLONE
     Dates: start: 20200909, end: 20200920
  6. REMDESIVIR. [Suspect]
     Active Substance: REMDESIVIR
     Indication: COVID-19
     Route: 041
     Dates: start: 20200909, end: 20200912
  7. CEFEPIME [Concomitant]
     Active Substance: CEFEPIME HYDROCHLORIDE
     Dates: start: 20200908, end: 20200908
  8. AZITHROMYCIN ANHYDROUS. [Concomitant]
     Active Substance: AZITHROMYCIN ANHYDROUS
     Dates: start: 20200911, end: 20200912
  9. RANOLAZINE XR [Concomitant]
     Dates: start: 20200909, end: 20200924
  10. INSULIN [Concomitant]
     Active Substance: INSULIN NOS
     Dates: start: 20200909
  11. TOCILIZUMAB. [Concomitant]
     Active Substance: TOCILIZUMAB
     Dates: start: 20200909, end: 20200909
  12. PRAVASTATIN. [Concomitant]
     Active Substance: PRAVASTATIN
     Dates: start: 20200909, end: 20200916
  13. CLOPIDOGREL [Concomitant]
     Active Substance: CLOPIDOGREL BISULFATE
     Dates: start: 20200909
  14. PROPOFOL. [Concomitant]
     Active Substance: PROPOFOL
     Dates: start: 20200911, end: 20200914
  15. CEFTRIAXONE. [Concomitant]
     Active Substance: CEFTRIAXONE
     Dates: start: 20200911, end: 20200912
  16. TRAZODONE [Concomitant]
     Active Substance: TRAZODONE HYDROCHLORIDE
     Dates: start: 20200908
  17. LISINOPRIL. [Concomitant]
     Active Substance: LISINOPRIL
     Dates: start: 20200909, end: 20200912
  18. FENTANYL. [Concomitant]
     Active Substance: FENTANYL
     Dates: start: 20200911, end: 20200916
  19. MONTELUKAST [Concomitant]
     Active Substance: MONTELUKAST SODIUM
     Dates: start: 20200909
  20. ZINC SULFATE. [Concomitant]
     Active Substance: ZINC SULFATE
     Dates: start: 20200908
  21. GABAPENTIN. [Concomitant]
     Active Substance: GABAPENTIN
     Dates: start: 20200909
  22. ENOXAPARIN [Concomitant]
     Active Substance: ENOXAPARIN
     Dates: start: 20200909, end: 20200914

REACTIONS (1)
  - Blood creatinine increased [None]

NARRATIVE: CASE EVENT DATE: 20200912
